FAERS Safety Report 25830150 (Version 1)
Quarter: 2025Q3

REPORT INFORMATION
  Report Type: Spontaneous
  Country: IN (occurrence: IN)
  Receive Date: 20250922
  Receipt Date: 20250922
  Transmission Date: 20251021
  Serious: Yes (Hospitalization, Other)
  Sender: STRIDES
  Company Number: IN-STRIDES ARCOLAB LIMITED-2025SP011747

PATIENT
  Age: 27 Year
  Sex: Female

DRUGS (3)
  1. DOXYCYCLINE [Interacting]
     Active Substance: DOXYCYCLINE
     Indication: Gastroenteritis
     Route: 065
  2. DOXYCYCLINE [Interacting]
     Active Substance: DOXYCYCLINE
     Route: 065
  3. METRONIDAZOLE [Suspect]
     Active Substance: METRONIDAZOLE
     Indication: Gastroenteritis
     Route: 065

REACTIONS (3)
  - Hypokalaemia [Recovered/Resolved]
  - Drug-genetic interaction [Unknown]
  - Maternal exposure during pregnancy [Unknown]
